FAERS Safety Report 6330068-7 (Version None)
Quarter: 2009Q3

REPORT INFORMATION
  Report Type: 
  Country: None (occurrence: None)
  Receive Date: 20090827
  Receipt Date: 20071008
  Transmission Date: 20100115
  Serious: Yes (Hospitalization, Other)
  Sender: FDA-Public Use
  Company Number: US-ASTRAZENECA-2007UW08893

PATIENT
  Age: 587 Month
  Sex: Female
  Weight: 100.7 kg

DRUGS (26)
  1. SEROQUEL [Suspect]
     Indication: BIPOLAR DISORDER
     Dosage: 100-325 MG
     Route: 048
     Dates: start: 19991001, end: 20061101
  2. SEROQUEL [Suspect]
     Route: 048
     Dates: start: 20000124
  3. GEODON [Concomitant]
     Dates: start: 20070201
  4. THORAZINE [Concomitant]
  5. COMBIVENT [Concomitant]
     Dosage: 2 TO 3 PUFFS FOUR TIMES A DAY
     Dates: start: 19981202
  6. AZMACORT [Concomitant]
     Dosage: 4 PUFFS 2 TIMES A DAY
     Dates: start: 19981202
  7. PREDNISONE TAB [Concomitant]
     Dosage: 10 MG-40MG
     Dates: start: 19981202
  8. WELLBUTRIN [Concomitant]
     Dosage: 150 SR TWO TIMES A DAY
     Dates: start: 19981202
  9. CARAFATE [Concomitant]
     Dates: start: 19981202
  10. PROPULSID [Concomitant]
     Dates: start: 19981202
  11. TEGRETOL [Concomitant]
     Dates: start: 19981202
  12. SYNTHROID [Concomitant]
     Dates: start: 19981202
  13. LASIX [Concomitant]
     Dates: start: 20000124
  14. PREMARIN [Concomitant]
     Dates: start: 20000124
  15. ANAFRANIL [Concomitant]
     Dates: start: 20000124
  16. SINGULAIR [Concomitant]
     Dates: start: 20000124
  17. PHENERGAN [Concomitant]
     Dates: start: 20000124
  18. CODEINE [Concomitant]
     Dates: start: 20000124
  19. GLUCOPHAGE [Concomitant]
     Dates: start: 20010502
  20. KLONOPIN [Concomitant]
     Dates: start: 20000124
  21. TOPAMAX [Concomitant]
     Dosage: 100 MG-600 MG
     Dates: start: 20010502
  22. TRAZODONE HCL [Concomitant]
     Dates: start: 20060320
  23. EFFEXOR [Concomitant]
     Dates: start: 20030103
  24. AVINZA [Concomitant]
     Dates: start: 20060320
  25. OXYCONTIN [Concomitant]
     Indication: BACK PAIN
     Dates: start: 20060320
  26. OXYCONTIN [Concomitant]
     Indication: HEADACHE
     Dates: start: 20060320

REACTIONS (6)
  - DIABETES MELLITUS [None]
  - DIABETIC RETINOPATHY [None]
  - GASTRIC BYPASS [None]
  - PNEUMONIA [None]
  - PNEUMONIA BACTERIAL [None]
  - TYPE 2 DIABETES MELLITUS [None]
